FAERS Safety Report 15867206 (Version 1)
Quarter: 2019Q1

REPORT INFORMATION
  Report Type: Spontaneous
  Country: US (occurrence: US)
  Receive Date: 20190125
  Receipt Date: 20190125
  Transmission Date: 20190417
  Serious: Yes (Other)
  Sender: FDA-Public Use
  Company Number: None

PATIENT
  Sex: Female

DRUGS (4)
  1. KALYDECO [Concomitant]
     Active Substance: IVACAFTOR
  2. PULMOZYME [Suspect]
     Active Substance: DORNASE ALFA
     Indication: CYSTIC FIBROSIS
     Dosage: ?          OTHER ROUTE:NEBULIZER?
     Dates: start: 20180817
  3. ALBUTEROL. [Concomitant]
     Active Substance: ALBUTEROL
  4. MULTI VITAMIN. [Concomitant]

REACTIONS (1)
  - Lung infection pseudomonal [None]
